FAERS Safety Report 6126888-4 (Version None)
Quarter: 2009Q1

REPORT INFORMATION
  Report Type: 
  Country: None (occurrence: None)
  Receive Date: 20090320
  Receipt Date: 20081203
  Transmission Date: 20090719
  Serious: No
  Sender: FDA-Public Use
  Company Number: US-ABBOTT-08P-163-0490905-00

PATIENT
  Sex: Female

DRUGS (2)
  1. ERYTHROMYCIN BASE FILMTAB 250MG [Suspect]
     Indication: TOOTH ABSCESS
     Route: 048
     Dates: start: 20081202
  2. DONNATAL [Concomitant]
     Indication: DRUG USE FOR UNKNOWN INDICATION

REACTIONS (4)
  - DRY MOUTH [None]
  - FEELING HOT [None]
  - HOT FLUSH [None]
  - SKIN BURNING SENSATION [None]
